FAERS Safety Report 4882944-X (Version None)
Quarter: 2006Q1

REPORT INFORMATION
  Report Type: 
  Country: None (occurrence: None)
  Receive Date: 20060118
  Receipt Date: 20060113
  Transmission Date: 20060701
  Serious: Yes (Other)
  Sender: FDA-Public Use
  Company Number: IE-BOEHRINGER INGELHEIM PHARMACEUTICALS, INC.-2006-UK-00140IE

PATIENT
  Age: 49 Year
  Sex: Female

DRUGS (1)
  1. MICARDIS TABLETS (7/14/5-6) [Suspect]
     Indication: HYPERTENSION
     Dosage: 40 MG DAILY

REACTIONS (2)
  - CHEST DISCOMFORT [None]
  - DYSPNOEA EXACERBATED [None]
